FAERS Safety Report 8872995 (Version 1)
Quarter: 2012Q4

REPORT INFORMATION
  Report Type: Spontaneous
  Country: US (occurrence: None)
  Receive Date: 20121026
  Receipt Date: 20121026
  Transmission Date: 20130627
  Serious: No
  Sender: FDA-Public Use
  Company Number: None

PATIENT
  Age: 44 Year
  Sex: Male
  Weight: 112.3 kg

DRUGS (2)
  1. PRAZOSIN [Suspect]
     Route: 048
     Dates: start: 20120316, end: 20120529
  2. PRAZOSIN [Suspect]
     Route: 048
     Dates: start: 20120319, end: 20120529

REACTIONS (1)
  - Priapism [None]
